FAERS Safety Report 15332647 (Version 1)
Quarter: 2018Q3

REPORT INFORMATION
  Report Type: Spontaneous
  Country: IE (occurrence: IE)
  Receive Date: 20180830
  Receipt Date: 20180830
  Transmission Date: 20181010
  Serious: Yes (Hospitalization, Other)
  Sender: FDA-Public Use
  Company Number: IE-ABBVIE-18K-229-2465500-00

PATIENT
  Age: 50 Year
  Sex: Male

DRUGS (2)
  1. ADALIMUMAB [Suspect]
     Active Substance: ADALIMUMAB
     Indication: HIDRADENITIS
     Route: 058
     Dates: start: 201502
  2. MEROPENEM. [Concomitant]
     Active Substance: MEROPENEM
     Indication: PRODUCT USED FOR UNKNOWN INDICATION
     Dosage: X 7/7
     Route: 042
     Dates: start: 201502

REACTIONS (6)
  - Soft tissue disorder [Unknown]
  - Osteolysis [Unknown]
  - Osteomyelitis [Unknown]
  - Incisional drainage [Unknown]
  - Hidradenitis [Unknown]
  - Drug dependence [Unknown]
